FAERS Safety Report 19750104 (Version 1)
Quarter: 2021Q3

REPORT INFORMATION
  Report Type: Spontaneous
  Country: US (occurrence: US)
  Receive Date: 20210824
  Receipt Date: 20210824
  Transmission Date: 20211014
  Serious: No
  Sender: FDA-Public Use
  Company Number: None

PATIENT
  Sex: Female

DRUGS (1)
  1. GILENYA [Suspect]
     Active Substance: FINGOLIMOD HYDROCHLORIDE
     Indication: MULTIPLE SCLEROSIS
     Route: 048
     Dates: start: 20210622

REACTIONS (10)
  - Fatigue [None]
  - Dysaesthesia [None]
  - Angina pectoris [None]
  - Muscle spasms [None]
  - Tremor [None]
  - Migraine [None]
  - Anxiety [None]
  - Aphasia [None]
  - Multiple sclerosis [None]
  - Muscle twitching [None]
